FAERS Safety Report 10547849 (Version 1)
Quarter: 2014Q4

REPORT INFORMATION
  Report Type: Spontaneous
  Country: US (occurrence: None)
  Receive Date: 20141027
  Receipt Date: 20141027
  Transmission Date: 20150529
  Serious: Yes (Life-Threatening, Disabling, Other)
  Sender: FDA-Public Use
  Company Number: None

PATIENT
  Age: 34 Year
  Sex: Female
  Weight: 68.04 kg

DRUGS (1)
  1. BOTOX [Suspect]
     Active Substance: ONABOTULINUMTOXINA
     Indication: SKIN COSMETIC PROCEDURE
     Dates: start: 20140709

REACTIONS (13)
  - Chest pain [None]
  - Musculoskeletal pain [None]
  - Speech disorder [None]
  - Paraesthesia [None]
  - Hypoaesthesia [None]
  - Neck pain [None]
  - Tongue disorder [None]
  - Influenza like illness [None]
  - Malaise [None]
  - Muscular weakness [None]
  - Dysphagia [None]
  - Headache [None]
  - Dyspnoea [None]

NARRATIVE: CASE EVENT DATE: 20140709
